FAERS Safety Report 4435025-3 (Version None)
Quarter: 2004Q3

REPORT INFORMATION
  Report Type: 
  Country: None (occurrence: None)
  Receive Date: 20040826
  Receipt Date: 20040826
  Transmission Date: 20050211
  Serious: No
  Sender: FDA-Public Use
  Company Number: None

PATIENT
  Sex: Male

DRUGS (1)
  1. FLUOXETINE [Suspect]
     Dosage: 10 ML PER DAY
     Dates: start: 20020601, end: 20020801

REACTIONS (4)
  - DRUG EFFECT DECREASED [None]
  - ENURESIS [None]
  - IRRITABILITY [None]
  - PHARMACEUTICAL PRODUCT COMPLAINT [None]
